FAERS Safety Report 6608727-8 (Version None)
Quarter: 2010Q1

REPORT INFORMATION
  Report Type: 
  Country: None (occurrence: None)
  Receive Date: 20100301
  Receipt Date: 20100222
  Transmission Date: 20100710
  Serious: Yes (Other)
  Sender: FDA-Public Use
  Company Number: PHHO2007GB05692

PATIENT
  Sex: Female
  Weight: 102 kg

DRUGS (5)
  1. CGS 20267 T30748+ [Suspect]
     Indication: BREAST CANCER
     Dosage: 2.5 MG, QD
     Route: 048
     Dates: start: 20040225
  2. ZOLEDRONIC ACID [Suspect]
     Indication: BREAST CANCER
     Dosage: 4 MG, UNK
     Route: 042
     Dates: start: 20040225
  3. ORALDENE [Concomitant]
  4. CORSODYL [Concomitant]
  5. LISTERINE [Concomitant]

REACTIONS (5)
  - BACTERIAL INFECTION [None]
  - GINGIVAL INFECTION [None]
  - IMPAIRED HEALING [None]
  - PAIN IN JAW [None]
  - TOOTH EXTRACTION [None]
